FAERS Safety Report 14115340 (Version 1)
Quarter: 2017Q4

REPORT INFORMATION
  Report Type: Not Available
  Country: US (occurrence: US)
  Receive Date: 20171023
  Receipt Date: 20171023
  Transmission Date: 20180321
  Serious: No
  Sender: FDA-Public Use
  Company Number: US-NEUROCRINE BIOSCIENCES INC.-2017NBI00626

PATIENT
  Age: 68 Year
  Sex: Female

DRUGS (19)
  1. CLONAZEPAM. [Concomitant]
     Active Substance: CLONAZEPAM
  2. CYMBALTA [Concomitant]
     Active Substance: DULOXETINE HYDROCHLORIDE
  3. METOPROLOL. [Concomitant]
     Active Substance: METOPROLOL
  4. LASIX [Concomitant]
     Active Substance: FUROSEMIDE
  5. DULOXETINE. [Concomitant]
     Active Substance: DULOXETINE
  6. MIRALAX [Concomitant]
     Active Substance: POLYETHYLENE GLYCOL 3350
  7. VITAMIN D [Concomitant]
     Active Substance: CHOLECALCIFEROL
  8. INGREZZA [Suspect]
     Active Substance: VALBENAZINE
     Indication: PRODUCT USED FOR UNKNOWN INDICATION
     Route: 048
     Dates: start: 20170630, end: 20170707
  9. ASPIRIN. [Concomitant]
     Active Substance: ASPIRIN
  10. GABAPENTIN. [Concomitant]
     Active Substance: GABAPENTIN
  11. PROTONIX [Concomitant]
     Active Substance: PANTOPRAZOLE SODIUM
  12. TRAZODONE [Concomitant]
     Active Substance: TRAZODONE HYDROCHLORIDE
  13. VITAMIN B-1 [Concomitant]
     Active Substance: THIAMINE
  14. INGREZZA [Suspect]
     Active Substance: VALBENAZINE
     Route: 048
     Dates: start: 20170708
  15. CRESTOR [Concomitant]
     Active Substance: ROSUVASTATIN CALCIUM
  16. TUMS [Concomitant]
     Active Substance: CALCIUM CARBONATE
  17. TYLENOL [Concomitant]
     Active Substance: ACETAMINOPHEN
  18. FLOVENT [Concomitant]
     Active Substance: FLUTICASONE PROPIONATE
  19. GEODON [Concomitant]
     Active Substance: ZIPRASIDONE HYDROCHLORIDE\ZIPRASIDONE MESYLATE

REACTIONS (4)
  - Restlessness [Unknown]
  - Muscle tightness [Not Recovered/Not Resolved]
  - Anxiety [Unknown]
  - Paraesthesia [Unknown]

NARRATIVE: CASE EVENT DATE: 20170630
